FAERS Safety Report 8905633 (Version 1)
Quarter: 2012Q4

REPORT INFORMATION
  Report Type: 
  Country: US (occurrence: US)
  Receive Date: 20121109
  Receipt Date: 20121109
  Transmission Date: 20130627
  Serious: Yes (Hospitalization)
  Sender: FDA-Public Use
  Company Number: PHHY2012US101151

PATIENT
  Age: 48 Year
  Sex: Female
  Weight: 52.15 kg

DRUGS (16)
  1. GILENYA [Suspect]
     Indication: MULTIPLE SCLEROSIS
     Dosage: 0.5 mg, QD
     Route: 048
     Dates: start: 20110128
  2. GILENYA [Suspect]
     Dosage: 0.5 mg, QD
     Route: 048
     Dates: start: 20110215, end: 20120911
  3. GILENYA [Suspect]
     Dosage: 0.5 mg, QD
     Route: 048
     Dates: start: 201111
  4. GILENYA [Suspect]
     Dosage: 0.5 mg, QD
     Route: 048
     Dates: start: 20111228, end: 20120312
  5. GILENYA [Suspect]
     Dosage: 0.5 mg, QD
     Route: 048
  6. METHYLPREDNISOLONE [Concomitant]
  7. PREDNISONE [Concomitant]
     Route: 048
  8. VIVELLE-DOT [Concomitant]
  9. PROMETRIUM [Concomitant]
     Route: 048
  10. CRESTOR [Concomitant]
  11. STEROIDS NOS [Concomitant]
     Dates: start: 201108, end: 201111
  12. STEROIDS NOS [Concomitant]
     Dates: start: 20111125, end: 20111226
  13. PLAVIX [Concomitant]
  14. CELEXA [Concomitant]
     Dosage: 20 mg, QD
  15. HYDROCHLOROTHIAZIDE [Concomitant]
  16. ANTIBIOTICS [Concomitant]

REACTIONS (2)
  - Chest discomfort [Unknown]
  - Dyspnoea [Unknown]
